FAERS Safety Report 8936580 (Version 2)
Quarter: 2013Q1

REPORT INFORMATION
  Report Type: Spontaneous
  Country: US (occurrence: US)
  Receive Date: 20121130
  Receipt Date: 20130110
  Transmission Date: 20140127
  Serious: Yes (Disabling, Other)
  Sender: FDA-Public Use
  Company Number: US-PFIZER INC-2012299649

PATIENT
  Sex: Male

DRUGS (2)
  1. LYRICA [Suspect]
     Dosage: CAPSULES 50 MG
  2. AMITRIPTYLINE [Concomitant]
     Dosage: UNK

REACTIONS (2)
  - Impaired work ability [Unknown]
  - Drug ineffective [Unknown]
